FAERS Safety Report 14107547 (Version 1)
Quarter: 2017Q4

REPORT INFORMATION
  Report Type: Spontaneous
  Country: US (occurrence: None)
  Receive Date: 20171019
  Receipt Date: 20171019
  Transmission Date: 20180321
  Serious: Yes (Hospitalization)
  Sender: FDA-Public Use
  Company Number: None

PATIENT
  Age: 77 Year
  Sex: Female

DRUGS (3)
  1. DIOVAN HCT [Concomitant]
     Active Substance: HYDROCHLOROTHIAZIDE\VALSARTAN
  2. ATENOLOL. [Concomitant]
     Active Substance: ATENOLOL
  3. HARVONI [Suspect]
     Active Substance: LEDIPASVIR\SOFOSBUVIR
     Route: 048
     Dates: start: 20171001

REACTIONS (8)
  - Headache [None]
  - Oesophageal irritation [None]
  - Electrocardiogram abnormal [None]
  - Dyspnoea [None]
  - Myocardial necrosis marker increased [None]
  - Musculoskeletal discomfort [None]
  - Fatigue [None]
  - Chest discomfort [None]

NARRATIVE: CASE EVENT DATE: 20171013
